FAERS Safety Report 5267346-9 (Version None)
Quarter: 2007Q1

REPORT INFORMATION
  Report Type: 
  Country: None (occurrence: None)
  Receive Date: 20070316
  Receipt Date: 20070308
  Transmission Date: 20070707
  Serious: Yes (Life-Threatening, Hospitalization)
  Sender: FDA-Public Use
  Company Number: NL-ROCHE-486541

PATIENT
  Age: 33 Year
  Sex: Male
  Weight: 71 kg

DRUGS (2)
  1. XELODA [Suspect]
     Indication: COLORECTAL CANCER
     Route: 065
  2. NEXIUM [Concomitant]
     Indication: ABDOMINAL PAIN

REACTIONS (3)
  - ABDOMINAL PAIN UPPER [None]
  - CARDIAC FIBRILLATION [None]
  - HYPOTHERMIA [None]
